FAERS Safety Report 17344550 (Version 1)
Quarter: 2020Q1

REPORT INFORMATION
  Report Type: Spontaneous
  Country: DE (occurrence: DE)
  Receive Date: 20200129
  Receipt Date: 20200129
  Transmission Date: 20200409
  Serious: Yes (Other)
  Sender: FDA-Public Use
  Company Number: DE-ALLERGAN-2003317US

PATIENT
  Sex: Male

DRUGS (2)
  1. OFLOXACIN UNK [Suspect]
     Active Substance: OFLOXACIN
     Dosage: 3MG EYE DROPS
     Dates: start: 2016
  2. OFLOXACIN UNK [Suspect]
     Active Substance: OFLOXACIN
     Indication: ANTIBIOTIC PROPHYLAXIS
     Dosage: UNK
     Dates: start: 2019

REACTIONS (18)
  - Depression [Unknown]
  - Nightmare [Unknown]
  - Atrial fibrillation [Unknown]
  - Memory impairment [Unknown]
  - Cardiac discomfort [Unknown]
  - Joint swelling [Unknown]
  - Nervous system disorder [Unknown]
  - Insomnia [Unknown]
  - Inflammation [Unknown]
  - Cough [Unknown]
  - Tendonitis [Unknown]
  - Muscular weakness [Unknown]
  - Heart rate increased [Unknown]
  - Gait disturbance [Unknown]
  - Myalgia [Unknown]
  - Auditory disorder [Unknown]
  - Paranasal sinus discomfort [Unknown]
  - Adverse reaction [Unknown]
